FAERS Safety Report 4351296-6 (Version None)
Quarter: 2004Q2

REPORT INFORMATION
  Report Type: 
  Country: None (occurrence: None)
  Receive Date: 20040430
  Receipt Date: 20040430
  Transmission Date: 20050107
  Serious: Yes (Life-Threatening)
  Sender: FDA-Public Use
  Company Number: None

PATIENT
  Age: 9 Year
  Sex: Male
  Weight: 20.4119 kg

DRUGS (2)
  1. WELLBUTRIN [Suspect]
     Dosage: ONCE DAILY
     Dates: start: 20040303, end: 20040430
  2. WELLBUTRIN [Suspect]
     Dosage: ONCE DAILY
     Dates: start: 20040404, end: 20040430

REACTIONS (2)
  - SELF INJURIOUS BEHAVIOUR [None]
  - SUICIDAL IDEATION [None]
